FAERS Safety Report 25676015 (Version 1)
Quarter: 2025Q3

REPORT INFORMATION
  Report Type: Spontaneous
  Country: EU (occurrence: EU)
  Receive Date: 20250813
  Receipt Date: 20250813
  Transmission Date: 20251021
  Serious: Yes (Hospitalization)
  Sender: ELI LILLY AND COMPANY
  Company Number: None

PATIENT
  Age: 62 Year
  Sex: Female
  Weight: 64 kg

DRUGS (1)
  1. IXEKIZUMAB [Suspect]
     Active Substance: IXEKIZUMAB
     Indication: Psoriasis
     Route: 058
     Dates: start: 20210519, end: 20210519

REACTIONS (4)
  - Pruritus [Recovering/Resolving]
  - Joint swelling [Recovering/Resolving]
  - Pyrexia [Recovering/Resolving]
  - Erythema multiforme [Recovering/Resolving]

NARRATIVE: CASE EVENT DATE: 20210519
